FAERS Safety Report 23645124 (Version 2)
Quarter: 2024Q2

REPORT INFORMATION
  Report Type: Spontaneous
  Country: US (occurrence: US)
  Receive Date: 20240318
  Receipt Date: 20240401
  Transmission Date: 20240716
  Serious: No
  Sender: FDA-Public Use
  Company Number: US-FreseniusKabi-FK202404229

PATIENT
  Sex: Male
  Weight: 88.5 kg

DRUGS (1)
  1. SENSORCAINE MPF [Suspect]
     Active Substance: BUPIVACAINE HYDROCHLORIDE
     Indication: Knee arthroplasty
     Dosage: FORM OF ADMIN: INJECTION?FREQUENCY: ONE TIME DOSE?DOSE: 15 MG
     Route: 037
     Dates: start: 20240312

REACTIONS (2)
  - Therapeutic product effect delayed [Unknown]
  - Off label use [Unknown]

NARRATIVE: CASE EVENT DATE: 20240312
